FAERS Safety Report 9712060 (Version 2)
Quarter: 2013Q4

REPORT INFORMATION
  Report Type: Spontaneous
  Country: US (occurrence: US)
  Receive Date: 20131126
  Receipt Date: 20131126
  Transmission Date: 20140711
  Serious: No
  Sender: FDA-Public Use
  Company Number: US-BRISTOL-MYERS SQUIBB COMPANY-19143502

PATIENT
  Age: 34 Year
  Sex: Female
  Weight: 74.37 kg

DRUGS (4)
  1. BYDUREON [Suspect]
     Indication: POLYCYSTIC OVARIES
     Dosage: LAST DOSE-15JUL13
     Dates: start: 201306
  2. BYDUREON [Suspect]
     Indication: INSULIN RESISTANCE
     Dosage: LAST DOSE-15JUL13
     Dates: start: 201306
  3. METFORMIN [Concomitant]
     Dosage: 1DF:850 UNITS NOS
  4. CYMBALTA [Concomitant]

REACTIONS (2)
  - Off label use [Unknown]
  - Injection site nodule [Unknown]
